FAERS Safety Report 9000118 (Version 2)
Quarter: 2013Q1

REPORT INFORMATION
  Report Type: Spontaneous
  Country: US (occurrence: US)
  Receive Date: 20130102
  Receipt Date: 20130219
  Transmission Date: 20140127
  Serious: Yes (Hospitalization, Other)
  Sender: FDA-Public Use
  Company Number: US-PFIZER INC-2012333038

PATIENT
  Age: 47 Year
  Sex: Female
  Weight: 59.41 kg

DRUGS (3)
  1. PRISTIQ [Suspect]
     Indication: DEPRESSION
     Dosage: 100 MG, 1X/DAY
     Route: 048
     Dates: start: 20120702, end: 20121223
  2. PRISTIQ [Suspect]
     Indication: ANXIETY
  3. LORAZEPAM [Concomitant]
     Indication: ANXIETY
     Dosage: UNK
     Dates: start: 2006

REACTIONS (4)
  - Gastrointestinal haemorrhage [Recovered/Resolved]
  - Pain [Recovered/Resolved]
  - Large intestinal haemorrhage [Recovered/Resolved]
  - Colitis [Recovered/Resolved]
